FAERS Safety Report 6931566-5 (Version None)
Quarter: 2010Q3

REPORT INFORMATION
  Report Type: 
  Country: None (occurrence: None)
  Receive Date: 20100819
  Receipt Date: 20100805
  Transmission Date: 20110219
  Serious: Yes (Hospitalization)
  Sender: FDA-Public Use
  Company Number: US-ELI_LILLY_AND_COMPANY-US201006002520

PATIENT
  Sex: Female

DRUGS (10)
  1. FORTEO [Suspect]
     Indication: OSTEOPOROSIS
     Dosage: 20 MG, DAILY (1/D)
     Route: 058
     Dates: start: 20091221
  2. SPIRIVA [Concomitant]
  3. DUONEB [Concomitant]
  4. VICODIN [Concomitant]
  5. SINGULAIR [Concomitant]
  6. PRAVACHOL [Concomitant]
  7. ADVIL PM                           /05810501/ [Concomitant]
  8. PLETAL [Concomitant]
  9. PREDNISONE [Concomitant]
  10. XANAX [Concomitant]

REACTIONS (1)
  - CHRONIC OBSTRUCTIVE PULMONARY DISEASE [None]
